FAERS Safety Report 11311989 (Version 3)
Quarter: 2015Q3

REPORT INFORMATION
  Report Type: Report from Study
  Country: CZ (occurrence: CZ)
  Receive Date: 20150727
  Receipt Date: 20150819
  Transmission Date: 20151125
  Serious: Yes (Death, Hospitalization, Other)
  Sender: FDA-Public Use
  Company Number: CZ-BIOGENIDEC-2015BI058775

PATIENT
  Age: 47 Year
  Sex: Female
  Weight: 68 kg

DRUGS (16)
  1. KALIUM CHLORATUM [Concomitant]
     Active Substance: POTASSIUM CHLORIDE
  2. SIRDALUD [Concomitant]
     Active Substance: TIZANIDINE
  3. DOXYBENE [Concomitant]
     Dates: start: 20150401, end: 20150428
  4. BLINDED THERAPY [Suspect]
     Active Substance: INVESTIGATIONAL PRODUCT
     Indication: MULTIPLE SCLEROSIS
     Route: 048
     Dates: start: 20150318, end: 20150506
  5. VALDOXAN [Concomitant]
     Active Substance: AGOMELATINE
  6. FURON [Concomitant]
     Active Substance: FUROSEMIDE
  7. MEDROL [Concomitant]
     Active Substance: METHYLPREDNISOLONE
     Indication: MULTIPLE SCLEROSIS
     Dates: start: 2004
  8. PYRIDOXINE [Concomitant]
     Active Substance: PYRIDOXINE
  9. HELICID [Concomitant]
  10. BETAFERON [Concomitant]
     Active Substance: INTERFERON BETA-1B
  11. DALACIN [Concomitant]
     Active Substance: CLINDAMYCIN\CLINDAMYCIN PHOSPHATE
     Dates: start: 20150401, end: 20150428
  12. BACLOFEN. [Concomitant]
     Active Substance: BACLOFEN
  13. VITAMIN E [Concomitant]
     Active Substance: .ALPHA.-TOCOPHEROL
  14. VIGANTOL [Concomitant]
  15. LOKREN [Concomitant]
     Active Substance: BETAXOLOL HYDROCHLORIDE
     Indication: HYPERTENSION
     Dates: start: 2000
  16. CITALOPRAM [Concomitant]
     Active Substance: CITALOPRAM HYDROBROMIDE
     Indication: DEPRESSION
     Dates: start: 2010

REACTIONS (2)
  - Multiple sclerosis relapse [Recovered/Resolved with Sequelae]
  - Ovarian endometrioid carcinoma [Fatal]

NARRATIVE: CASE EVENT DATE: 20150429
